FAERS Safety Report 5807518-5 (Version None)
Quarter: 2008Q3

REPORT INFORMATION
  Report Type: 
  Country: None (occurrence: None)
  Receive Date: 20080711
  Receipt Date: 20021220
  Transmission Date: 20090109
  Serious: Yes (Life-Threatening, Hospitalization)
  Sender: FDA-Public Use
  Company Number: US-BAXTER-2007BH009970

PATIENT
  Age: 64 Year
  Sex: Male

DRUGS (2)
  1. DOPAMINE HCL IN 5% DEXTROSE [Suspect]
     Indication: POLYURIA
     Dosage: DOSE UNIT:
     Route: 042
     Dates: start: 20021220
  2. DOPAMINE HCL IN 5% DEXTROSE [Suspect]
     Dosage: DOSE UNIT:
     Route: 042
     Dates: start: 20021220

REACTIONS (2)
  - ANAPHYLACTIC REACTION [None]
  - RESPIRATORY ARREST [None]
